FAERS Safety Report 5499170-6 (Version None)
Quarter: 2007Q4

REPORT INFORMATION
  Report Type: 
  Country: None (occurrence: None)
  Receive Date: 20071026
  Receipt Date: 20071024
  Transmission Date: 20080405
  Serious: Yes (Hospitalization)
  Sender: FDA-Public Use
  Company Number: JP-BRISTOL-MYERS SQUIBB COMPANY-13924832

PATIENT
  Age: 68 Year
  Sex: Female

DRUGS (17)
  1. TAXOL [Suspect]
     Indication: NON-SMALL CELL LUNG CANCER METASTATIC
     Route: 041
     Dates: start: 20070801, end: 20071010
  2. PARAPLATIN [Suspect]
     Indication: NON-SMALL CELL LUNG CANCER METASTATIC
     Route: 041
     Dates: start: 20070801, end: 20071010
  3. AVASTIN [Suspect]
     Indication: NON-SMALL CELL LUNG CANCER METASTATIC
     Route: 041
     Dates: start: 20070801, end: 20070914
  4. DUROTEP [Concomitant]
     Route: 062
  5. PRIMPERAN [Concomitant]
     Route: 048
  6. KENALOG [Concomitant]
     Route: 049
  7. NOVAMIN [Concomitant]
     Route: 048
  8. LOXONIN [Concomitant]
     Route: 048
  9. SELBEX [Concomitant]
     Route: 048
  10. ADOFEED [Concomitant]
     Route: 062
  11. OXYNORM [Concomitant]
     Route: 048
  12. GOSHAJINKIGAN [Concomitant]
     Route: 048
  13. SENNA LEAF [Concomitant]
     Route: 048
  14. OXYCONTIN [Concomitant]
     Route: 048
  15. MAGMITT [Concomitant]
     Route: 048
  16. NORITREN [Concomitant]
     Route: 048
  17. LAXOBERON [Concomitant]
     Route: 048

REACTIONS (2)
  - GASTRIC ULCER HAEMORRHAGE [None]
  - PYREXIA [None]
